FAERS Safety Report 17577519 (Version 1)
Quarter: 2020Q1

REPORT INFORMATION
  Report Type: Spontaneous
  Country: US (occurrence: US)
  Receive Date: 20200324
  Receipt Date: 20200324
  Transmission Date: 20200409
  Serious: Yes (Death, Hospitalization, Other)
  Sender: FDA-Public Use
  Company Number: US-HIKMA PHARMACEUTICALS USA INC.-US-H14001-20-01426

PATIENT
  Age: 55 Year
  Sex: Male
  Weight: 105.7 kg

DRUGS (16)
  1. INCB018424 [Suspect]
     Active Substance: RUXOLITINIB
     Route: 065
     Dates: start: 20170524, end: 20170524
  2. INCB018424 [Suspect]
     Active Substance: RUXOLITINIB
     Route: 048
     Dates: start: 20170516, end: 20170522
  3. INCB018424 [Suspect]
     Active Substance: RUXOLITINIB
     Route: 065
     Dates: start: 20170525, end: 20170611
  4. METHYLPREDNISOLONE. [Suspect]
     Active Substance: METHYLPREDNISOLONE
     Indication: ACUTE GRAFT VERSUS HOST DISEASE
     Route: 042
     Dates: start: 20170427
  5. PREDNISONE. [Suspect]
     Active Substance: PREDNISONE
     Indication: ACUTE GRAFT VERSUS HOST DISEASE
     Route: 048
     Dates: start: 20170427, end: 20170509
  6. PREDNISONE. [Suspect]
     Active Substance: PREDNISONE
     Route: 048
     Dates: start: 20170605, end: 20170707
  7. INCB018424 [Suspect]
     Active Substance: RUXOLITINIB
     Indication: ACUTE GRAFT VERSUS HOST DISEASE
     Route: 048
     Dates: start: 20170427, end: 20170511
  8. INCB018424 [Suspect]
     Active Substance: RUXOLITINIB
     Route: 065
     Dates: start: 20170614, end: 20170615
  9. METHYLPREDNISOLONE. [Suspect]
     Active Substance: METHYLPREDNISOLONE
     Route: 042
     Dates: start: 20170612, end: 20170613
  10. METHYLPREDNISOLONE. [Suspect]
     Active Substance: METHYLPREDNISOLONE
     Route: 042
     Dates: start: 20170615
  11. PREDNISONE. [Suspect]
     Active Substance: PREDNISONE
     Route: 048
     Dates: start: 20170510, end: 20170510
  12. PREDNISONE. [Suspect]
     Active Substance: PREDNISONE
     Route: 048
     Dates: start: 20170514, end: 20170604
  13. PREDNISONE. [Suspect]
     Active Substance: PREDNISONE
     Route: 048
     Dates: start: 20170614, end: 20170614
  14. PREDNISONE. [Suspect]
     Active Substance: PREDNISONE
     Route: 048
     Dates: start: 20170608, end: 20170610
  15. PREDNISONE. [Suspect]
     Active Substance: PREDNISONE
     Route: 048
     Dates: start: 20170611, end: 20170611
  16. INCB018424 [Suspect]
     Active Substance: RUXOLITINIB
     Route: 065
     Dates: start: 20170613, end: 20170613

REACTIONS (15)
  - Fungal infection [Unknown]
  - Neutrophil count decreased [Unknown]
  - Eye disorder [Not Recovered/Not Resolved]
  - Pseudomonas test positive [Unknown]
  - Stenotrophomonas infection [Unknown]
  - Subperiosteal abscess [Unknown]
  - Pulmonary haemorrhage [Fatal]
  - Platelet count decreased [Unknown]
  - Cellulitis orbital [Unknown]
  - Lethargy [Unknown]
  - Sinusitis [Unknown]
  - Organising pneumonia [Unknown]
  - Staphylococcal infection [Unknown]
  - Pulse absent [Unknown]
  - Pneumonia [Unknown]

NARRATIVE: CASE EVENT DATE: 20170503
